FAERS Safety Report 19035758 (Version 2)
Quarter: 2021Q1

REPORT INFORMATION
  Report Type: Report from Study
  Country: US (occurrence: US)
  Receive Date: 20210320
  Receipt Date: 20210322
  Transmission Date: 20210420
  Serious: Yes (Life-Threatening, Hospitalization)
  Sender: FDA-Public Use
  Company Number: US-009507513-2011USA015029

PATIENT
  Age: 11 Year
  Sex: Male
  Weight: 61.6 kg

DRUGS (1)
  1. PEMBROLIZUMAB. [Suspect]
     Active Substance: PEMBROLIZUMAB
     Indication: EPENDYMOMA
     Dosage: 2 MILLIGRAM/KILOGRAM, OVER 30 MINUTES ON DAY 1, Q3W
     Route: 042
     Dates: start: 20200701, end: 20201020

REACTIONS (3)
  - Cardiac arrest [Recovered/Resolved]
  - Embolism [Not Recovered/Not Resolved]
  - Aspiration [Not Recovered/Not Resolved]

NARRATIVE: CASE EVENT DATE: 20201110
